FAERS Safety Report 4467118-9 (Version None)
Quarter: 2004Q4

REPORT INFORMATION
  Report Type: 
  Country: None (occurrence: None)
  Receive Date: 20041006
  Receipt Date: 20040924
  Transmission Date: 20050328
  Serious: Yes (Death, Other)
  Sender: FDA-Public Use
  Company Number: GB-BRISTOL-MYERS SQUIBB COMPANY-12711412

PATIENT
  Age: 78 Year
  Sex: Male

DRUGS (5)
  1. CARBOPLATIN [Suspect]
  2. ETOPOSIDE [Suspect]
  3. GRANISETRON [Concomitant]
     Indication: PROPHYLAXIS OF NAUSEA AND VOMITING
  4. DEXAMETHASONE [Concomitant]
     Indication: PROPHYLAXIS OF NAUSEA AND VOMITING
  5. DOMPERIDONE [Concomitant]
     Indication: PROPHYLAXIS OF NAUSEA AND VOMITING

REACTIONS (3)
  - NEUTROPENIC SEPSIS [None]
  - PNEUMONIA [None]
  - RENAL IMPAIRMENT [None]
